FAERS Safety Report 9679048 (Version 2)
Quarter: 2013Q4

REPORT INFORMATION
  Report Type: Report from Study
  Country: DE (occurrence: DE)
  Receive Date: 20131108
  Receipt Date: 20131108
  Transmission Date: 20140711
  Serious: Yes (Hospitalization, Other)
  Sender: FDA-Public Use
  Company Number: DE-VERTEX PHARMACEUTICALS INC-000000000000000160

PATIENT
  Age: 63 Year
  Sex: Female
  Weight: 62 kg

DRUGS (5)
  1. VX-950 (TELAPREVIR) [Suspect]
     Indication: HEPATITIS C
     Dosage: DOSAGE FORM: TABLET
     Route: 048
     Dates: start: 20111206, end: 20120131
  2. PEGASYS [Concomitant]
     Indication: CHRONIC HEPATITIS C
     Route: 058
     Dates: start: 20111206, end: 20120222
  3. COPEGUS [Concomitant]
     Indication: CHRONIC HEPATITIS C
     Route: 048
     Dates: start: 20111206, end: 20120227
  4. GLAUPAX [Concomitant]
  5. EXCIPIAL LIPOLOTIO [Concomitant]
     Indication: ECZEMA
     Dosage: DOSAGE FORM: UNSPECIFIED
     Route: 061
     Dates: start: 20120131, end: 20120302

REACTIONS (2)
  - Eczema [Not Recovered/Not Resolved]
  - Rash generalised [Recovered/Resolved]
